FAERS Safety Report 24183581 (Version 1)
Quarter: 2024Q3

REPORT INFORMATION
  Report Type: Spontaneous
  Country: DE (occurrence: DE)
  Receive Date: 20240807
  Receipt Date: 20240807
  Transmission Date: 20241016
  Serious: Yes (Hospitalization, Other)
  Sender: HIKMA
  Company Number: 2019SGN04626

PATIENT

DRUGS (10)
  1. ACYCLOVIR [Suspect]
     Active Substance: ACYCLOVIR
     Indication: Product used for unknown indication
     Dosage: 800 MILLIGRAM
     Route: 065
     Dates: start: 20191210
  2. BRENTUXIMAB VEDOTIN [Suspect]
     Active Substance: BRENTUXIMAB VEDOTIN
     Indication: Hodgkin^s disease
     Dosage: 1.8 MILLIGRAM/KILOGRAM
     Route: 065
     Dates: start: 20191204
  3. SULFAMETHOXAZOLE\TRIMETHOPRIM [Suspect]
     Active Substance: SULFAMETHOXAZOLE\TRIMETHOPRIM
     Indication: Product used for unknown indication
     Dosage: 960 MILLIGRAM
     Route: 065
     Dates: start: 201912
  4. CYCLOPHOSPHAMIDE [Suspect]
     Active Substance: CYCLOPHOSPHAMIDE
     Indication: Hodgkin^s disease
     Dosage: 1250 MILLIGRAM/SQ. METER
     Route: 065
     Dates: start: 20191205
  5. DACARBAZINE [Suspect]
     Active Substance: DACARBAZINE
     Indication: Hodgkin^s disease
     Dosage: 250 MILLIGRAM/SQ. METER
     Route: 065
     Dates: start: 20191206
  6. DEXAMETHASONE [Suspect]
     Active Substance: DEXAMETHASONE
     Indication: Hodgkin^s disease
     Dosage: 40 MILLIGRAM
     Route: 065
     Dates: start: 20191205
  7. DOXORUBICIN [Suspect]
     Active Substance: DOXORUBICIN
     Indication: Hodgkin^s disease
     Dosage: 40 MILLIGRAM/KILOGRAM
     Route: 065
     Dates: start: 20191205
  8. ETOPOSIDE [Suspect]
     Active Substance: ETOPOSIDE
     Indication: Hodgkin^s disease
     Dosage: 150 MILLIGRAM/SQ. METER
     Route: 065
     Dates: start: 20191205
  9. PANTOZOL [Suspect]
     Active Substance: PANTOPRAZOLE SODIUM
     Indication: Product used for unknown indication
     Dosage: 40 MILLIGRAM
     Route: 065
     Dates: start: 201912
  10. LEUPROLIDE ACETATE [Concomitant]
     Active Substance: ISOPROPYL ALCOHOL\LEUPROLIDE ACETATE
     Indication: Hodgkin^s disease
     Dosage: UNK
     Route: 065
     Dates: start: 20191203

REACTIONS (8)
  - Pneumonia [Recovered/Resolved]
  - Generalised tonic-clonic seizure [Unknown]
  - Hepatic enzyme increased [Unknown]
  - Decreased appetite [Unknown]
  - Abdominal pain [Unknown]
  - Blood bilirubin increased [Unknown]
  - C-reactive protein increased [Unknown]
  - Prothrombin time prolonged [Unknown]

NARRATIVE: CASE EVENT DATE: 20191213
